FAERS Safety Report 9371936 (Version 2)
Quarter: 2013Q4

REPORT INFORMATION
  Report Type: Report from Study
  Country: IT (occurrence: IT)
  Receive Date: 20130627
  Receipt Date: 20131025
  Transmission Date: 20140711
  Serious: Yes (Other)
  Sender: FDA-Public Use
  Company Number: IT-CELGENEUS-083-21880-13062619

PATIENT
  Age: 55 Year
  Sex: Male

DRUGS (9)
  1. REVLIMID [Suspect]
     Indication: PLASMA CELL MYELOMA
     Route: 048
     Dates: start: 20110810
  2. REVLIMID [Suspect]
     Route: 048
     Dates: end: 20120515
  3. REVLIMID [Suspect]
     Route: 048
     Dates: start: 200805, end: 200808
  4. REVLIMID [Suspect]
     Route: 048
     Dates: start: 201101, end: 201106
  5. REVLIMID [Suspect]
     Route: 048
     Dates: start: 20100505, end: 20100730
  6. PREDNISONE [Suspect]
     Indication: PLASMA CELL MYELOMA
     Route: 065
     Dates: start: 20110810, end: 20120515
  7. BACTRIM [Concomitant]
     Indication: ANTIBIOTIC PROPHYLAXIS
     Route: 065
     Dates: start: 20100504
  8. CARDIOASPIRIN [Concomitant]
     Indication: PROPHYLAXIS
     Dosage: 100 MILLIGRAM
     Route: 065
     Dates: start: 20100504
  9. LANSOX [Concomitant]
     Indication: PROPHYLAXIS
     Dosage: 30 MILLIGRAM
     Route: 065
     Dates: start: 20100504

REACTIONS (1)
  - Adenocarcinoma of colon [Not Recovered/Not Resolved]
